FAERS Safety Report 12975451 (Version 1)
Quarter: 2016Q4

REPORT INFORMATION
  Report Type: Spontaneous
  Country: US (occurrence: US)
  Receive Date: 20161122
  Receipt Date: 20161122
  Transmission Date: 20170207
  Serious: Yes (Hospitalization)
  Sender: FDA-Public Use
  Company Number: None

PATIENT
  Age: 62 Year
  Sex: Male
  Weight: 92 kg

DRUGS (2)
  1. AMLODIPINE/BENAZEPRIL [Suspect]
     Active Substance: AMLODIPINE BESYLATE\BENAZEPRIL HYDROCHLORIDE
     Indication: HYPERTENSION
     Dosage: 1 TAB EVERY DAY PO
     Route: 048
     Dates: end: 20160801
  2. NAPROXEN. [Suspect]
     Active Substance: NAPROXEN
     Indication: PAIN
     Dosage: 1 TAB EVERY DAY PO
     Route: 048
     Dates: start: 20160630, end: 20160713

REACTIONS (3)
  - Hyperkalaemia [None]
  - Blood urea increased [None]
  - Blood creatine increased [None]

NARRATIVE: CASE EVENT DATE: 20160712
